FAERS Safety Report 9840983 (Version 2)
Quarter: 2014Q1

REPORT INFORMATION
  Report Type: Spontaneous
  Country: FR (occurrence: FR)
  Receive Date: 20140124
  Receipt Date: 20140124
  Transmission Date: 20141002
  Serious: Yes (Hospitalization, Other)
  Sender: FDA-Public Use
  Company Number: FR-009507513-1401FRA000615

PATIENT
  Sex: Male
  Weight: 56 kg

DRUGS (1)
  1. TIMOPTOL LP 0.25%, COLLYRE EN SOLUTION [Suspect]
     Indication: HYPERTONIA
     Dosage: 1 GTT, QD
     Route: 047
     Dates: start: 2012

REACTIONS (4)
  - Lyme disease [Unknown]
  - Memory impairment [Not Recovered/Not Resolved]
  - Cerebral atrophy [Not Recovered/Not Resolved]
  - Condition aggravated [None]
